FAERS Safety Report 8504512-0 (Version None)
Quarter: 2012Q3

REPORT INFORMATION
  Report Type: 
  Country: None (occurrence: None)
  Receive Date: 20120711
  Receipt Date: 20120706
  Transmission Date: 20120928
  Serious: Yes (Hospitalization, Other)
  Sender: FDA-Public Use
  Company Number: US-PFIZER INC-2012096609

PATIENT
  Sex: Female
  Weight: 73.016 kg

DRUGS (7)
  1. MIRAPEX [Concomitant]
     Dosage: UNK
  2. FUROSEMIDE [Concomitant]
     Dosage: 40 MG, 2X/DAY
  3. REVATIO [Suspect]
     Indication: PULMONARY HYPERTENSION
     Dosage: 20 MG, 3X/DAY
     Route: 048
  4. PRAMIPEXOLE [Concomitant]
     Dosage: 0.25 MG, UNK
  5. KLOR-CON [Concomitant]
     Dosage: UNK
  6. WARFARIN [Concomitant]
     Dosage: 5 MG, UNK
  7. AMBRISENTAN [Concomitant]
     Indication: PULMONARY THROMBOSIS
     Dosage: UNK

REACTIONS (4)
  - PULMONARY EMBOLISM [None]
  - CARDIOMEGALY [None]
  - EMBOLISM [None]
  - CARDIAC DISORDER [None]
